FAERS Safety Report 24862485 (Version 4)
Quarter: 2025Q1

REPORT INFORMATION
  Report Type: Spontaneous
  Country: US (occurrence: US)
  Receive Date: 20250120
  Receipt Date: 20250225
  Transmission Date: 20250409
  Serious: Yes (Other)
  Sender: PFIZER
  Company Number: US-PFIZER INC-202400324828

PATIENT
  Age: 62 Year
  Sex: Male

DRUGS (7)
  1. XELJANZ XR [Suspect]
     Active Substance: TOFACITINIB CITRATE
  2. ARAVA [Concomitant]
     Active Substance: LEFLUNOMIDE
  3. SULFASALAZINE [Concomitant]
     Active Substance: SULFASALAZINE
  4. HYDROCODONE [Concomitant]
     Active Substance: HYDROCODONE
  5. AMLODIPINE [Concomitant]
     Active Substance: AMLODIPINE BESYLATE
     Indication: Blood pressure abnormal
  6. LISINOPRIL [Concomitant]
     Active Substance: LISINOPRIL
     Indication: Blood pressure abnormal
  7. SIMVASTATIN [Concomitant]
     Active Substance: SIMVASTATIN
     Indication: Blood cholesterol abnormal

REACTIONS (3)
  - Rib fracture [Unknown]
  - Pain [Unknown]
  - Respiratory disorder [Unknown]
